FAERS Safety Report 8913397 (Version 2)
Quarter: 2013Q1

REPORT INFORMATION
  Report Type: Spontaneous
  Country: GB (occurrence: None)
  Receive Date: 20121113
  Receipt Date: 20121206
  Transmission Date: 20140127
  Serious: Yes (Other)
  Sender: FDA-Public Use
  Company Number: DSA_60781_2012

PATIENT
  Age: 72 Year
  Sex: 0

DRUGS (9)
  1. METRONIDAZOLE (METRONIDAZOLE) [Suspect]
     Indication: PRODUCT USED FOR UNKNOWN INDICATION
     Dosage: 100 MG/20 ML TID
     Route: 041
     Dates: start: 20110308, end: 20110308
  2. CEFUROXIME [Suspect]
     Indication: PRODUCT USED FOR UNKNOWN INDICATION
     Dosage: 1 STAT DOSE; TOTAL INTRAVENOUS DRIP
     Route: 041
     Dates: start: 20110308, end: 20110308
  3. TRIMETHOPRIM [Suspect]
     Indication: URINARY TRACT INFECTION
     Route: 048
     Dates: start: 20110305, end: 20110305
  4. CFTRIAXONE [Suspect]
     Indication: PANCREATITIS
     Route: 041
     Dates: start: 20110308, end: 20110308
  5. ERYTHROMYCIN (ERYTHROMYCIN) [Suspect]
     Indication: PRODUCT USED FOR UNKNOWN INDICATION
     Dosage: 125 (UNITS UNSPECIFIED) TID
     Route: 048
     Dates: start: 20110319, end: 20110325
  6. PIPERACILLIN/TAZOBACTAM STRAGEN [Suspect]
     Indication: PNEUMONIA
     Dosage: 4.5  (UNITS UNSPECIFIED) TID
     Route: 041
     Dates: start: 20110420, end: 20110425
  7. CLAVULIN DUO [Suspect]
     Indication: SEPSIS
     Dosage: 1.2 (UNITS UNSPECIFIED) TID
     Route: 041
     Dates: start: 20110328, end: 20110403
  8. MEROPENEM (MEROPENEM) [Suspect]
     Indication: PANCREATITIS NECROTISING
     Route: 041
     Dates: start: 20110309, end: 20110313
  9. FLUCLOXACILLIN [Suspect]
     Indication: PRODUCT USED FOR UNKNOWN INDICATION
     Dosage: 500 (UNITS UNSPECIFIED) QID
     Dates: start: 20100908

REACTIONS (1)
  - Clostridium test positive [None]
